FAERS Safety Report 16609239 (Version 2)
Quarter: 2019Q3

REPORT INFORMATION
  Report Type: Spontaneous
  Country: US (occurrence: US)
  Receive Date: 20190722
  Receipt Date: 20190821
  Transmission Date: 20191004
  Serious: No
  Sender: FDA-Public Use
  Company Number: US-BAUSCH-BL-2019-019388

PATIENT
  Age: 69 Year
  Sex: Female
  Weight: 52.66 kg

DRUGS (1)
  1. VYZULTA [Suspect]
     Active Substance: LATANOPROSTENE BUNOD
     Indication: GLAUCOMA
     Dosage: AT NIGHT IN THE RIGHT EYE
     Route: 047
     Dates: start: 201906, end: 2019

REACTIONS (2)
  - Hypersensitivity [Recovering/Resolving]
  - Expired product administered [Unknown]

NARRATIVE: CASE EVENT DATE: 201906
